FAERS Safety Report 4318064-2 (Version None)
Quarter: 2004Q1

REPORT INFORMATION
  Report Type: 
  Country: None (occurrence: None)
  Receive Date: 20040317
  Receipt Date: 20040305
  Transmission Date: 20041129
  Serious: Yes (Life-Threatening, Hospitalization)
  Sender: FDA-Public Use
  Company Number: FI-BRISTOL-MYERS SQUIBB COMPANY-12524963

PATIENT
  Age: 71 Year
  Sex: Male

DRUGS (5)
  1. TREXAN (ORION) [Suspect]
     Indication: PSORIATIC ARTHROPATHY
     Dosage: DOSE ALSO REPORTED AS 2,1429 MG.
     Route: 048
     Dates: start: 19900101, end: 20031206
  2. ASASANTIN [Concomitant]
     Indication: ARTERIOSCLEROSIS
     Dosage: ALSO NOTED:  ^1X1^
     Route: 048
     Dates: end: 20031206
  3. CASODEX [Concomitant]
     Indication: PROSTATE CANCER
     Dosage: ALSO NOTED:  ^1X1^
     Route: 048
     Dates: start: 20031020, end: 20031206
  4. NEORAL [Concomitant]
     Indication: PSORIATIC ARTHROPATHY
     Dosage: ALSO NOTED:  ^1X1^
     Route: 048
     Dates: end: 20031206
  5. PREDNISONE [Concomitant]
     Indication: PSORIATIC ARTHROPATHY
     Dosage: ALSO NOTED:  ^1X1^
     Route: 048
     Dates: end: 20031206

REACTIONS (3)
  - NEUTROPENIA [None]
  - SEPSIS [None]
  - THROMBOCYTOPENIA [None]
